FAERS Safety Report 5887175-2 (Version None)
Quarter: 2008Q3

REPORT INFORMATION
  Report Type: 
  Country: None (occurrence: None)
  Receive Date: 20080915
  Receipt Date: 20080902
  Transmission Date: 20090109
  Serious: Yes (Other)
  Sender: FDA-Public Use
  Company Number: DSA_32362_2008

PATIENT
  Age: 24 Month

DRUGS (1)
  1. RENIVACE             (RENIVACE - ENALAPRIL MALEATE) [Suspect]
     Dosage: 5 MG 1X NOT THE PRESCRIVED AMOUNT ORAL
     Route: 048
     Dates: start: 20080828, end: 20080828

REACTIONS (2)
  - ACCIDENTAL EXPOSURE [None]
  - NO ADVERSE EVENT [None]
